FAERS Safety Report 24383224 (Version 2)
Quarter: 2024Q4

REPORT INFORMATION
  Report Type: Spontaneous
  Country: US (occurrence: US)
  Receive Date: 20241001
  Receipt Date: 20241119
  Transmission Date: 20250114
  Serious: No
  Sender: CATALYST PHARMA
  Company Number: US-CATALYST PHARMACEUTICALS-US-CATA-24-00529

PATIENT
  Sex: Male
  Weight: 39.909 kg

DRUGS (12)
  1. AGAMREE [Suspect]
     Active Substance: VAMOROLONE
     Indication: Duchenne muscular dystrophy
     Dosage: 5.3 ML ONCE A DAY
     Route: 048
     Dates: start: 20240531
  2. GABAPENTIN [Concomitant]
     Active Substance: GABAPENTIN
     Indication: Pain
     Dosage: 250 MG PER 5 ML, 2 ML DAILY EVERY NIGHT AT BEDTIME
     Route: 065
     Dates: start: 20240510
  3. VITAMIN D [Concomitant]
     Active Substance: VITAMIN D NOS
     Indication: Bone disorder
     Dosage: 10 MG DAILY
     Route: 048
     Dates: start: 20240528
  4. CETIRIZINE [Concomitant]
     Active Substance: CETIRIZINE HYDROCHLORIDE
     Indication: Seasonal allergy
     Dosage: 10 ML AS NEEDED
     Route: 048
     Dates: start: 20240109
  5. ALBUTEROL [Concomitant]
     Active Substance: ALBUTEROL
     Indication: Cough
     Dosage: 2.5 MG/3 ML Q4H PRN
     Route: 055
     Dates: start: 20230505
  6. ALBUTEROL [Concomitant]
     Active Substance: ALBUTEROL
     Indication: Dyspnoea
  7. FAMOTIDINE [Concomitant]
     Active Substance: FAMOTIDINE
     Indication: Gastrooesophageal reflux disease
     Dosage: 20 MG EVERY NIGHT AT BADTIME
     Route: 048
     Dates: start: 20240510
  8. IBUPROFEN [Concomitant]
     Active Substance: IBUPROFEN
     Indication: Pain
     Dosage: 360 MG EVERY SIX HOURS
     Route: 048
     Dates: start: 20240206
  9. LISINOPRIL [Concomitant]
     Active Substance: LISINOPRIL
     Indication: Cardiac disorder
     Dosage: 2.5 MG DAILY
     Route: 048
     Dates: start: 20240510
  10. PREDNISONE [Concomitant]
     Active Substance: PREDNISONE
     Indication: Product used for unknown indication
     Dosage: 350 MG WEEKLY
     Route: 048
     Dates: start: 20240510
  11. UBIQUINOL [Concomitant]
     Active Substance: UBIQUINOL
     Indication: Product used for unknown indication
     Dosage: 100 MG DAILY
     Route: 048
     Dates: start: 20240510
  12. VITAMIN D2 [Concomitant]
     Active Substance: ERGOCALCIFEROL
     Indication: Bone disorder
     Dosage: 10 MCG ONCE DAILY
     Route: 065

REACTIONS (2)
  - Pollakiuria [Not Recovered/Not Resolved]
  - Weight increased [Not Recovered/Not Resolved]

NARRATIVE: CASE EVENT DATE: 20240101
